FAERS Safety Report 6795058-9 (Version None)
Quarter: 2010Q2

REPORT INFORMATION
  Report Type: 
  Country: None (occurrence: None)
  Receive Date: 20100625
  Receipt Date: 20100615
  Transmission Date: 20101027
  Serious: Yes (Hospitalization, Other)
  Sender: FDA-Public Use
  Company Number: PHHY2010CA19230

PATIENT
  Sex: Female

DRUGS (2)
  1. SANDOSTATIN LAR [Suspect]
     Indication: CARCINOID TUMOUR
     Dosage: 30MG EVERY 4 WEEKS
     Route: 030
     Dates: start: 20100317
  2. OCTREOTIDE ACETATE [Suspect]
     Route: 058

REACTIONS (2)
  - BLOOD PRESSURE SYSTOLIC INCREASED [None]
  - TUMOUR EXCISION [None]
